FAERS Safety Report 16910328 (Version 3)
Quarter: 2020Q1

REPORT INFORMATION
  Report Type: Report from Study
  Country: None (occurrence: US)
  Receive Date: 20191011
  Receipt Date: 20200108
  Transmission Date: 20200409
  Serious: Yes (Hospitalization, Other)
  Sender: FDA-Public Use
  Company Number: US-ABBVIE-19K-163-2954531-00

PATIENT
  Age: 46 Year
  Sex: Female

DRUGS (1)
  1. HUMIRA [Suspect]
     Active Substance: ADALIMUMAB
     Indication: HIDRADENITIS
     Route: 058
     Dates: start: 20180816

REACTIONS (13)
  - Hypernatraemia [Unknown]
  - Cystitis interstitial [Unknown]
  - Depression [Unknown]
  - Emotional distress [Unknown]
  - Post-traumatic stress disorder [Unknown]
  - Swelling [Unknown]
  - Renal cell carcinoma [Not Recovered/Not Resolved]
  - Immunodeficiency [Unknown]
  - Swelling [Recovered/Resolved]
  - Renal neoplasm [Recovered/Resolved]
  - Pain [Unknown]
  - Unevaluable event [Unknown]
  - Blood pressure abnormal [Unknown]

NARRATIVE: CASE EVENT DATE: 201809
